FAERS Safety Report 9092112 (Version 1)
Quarter: 2013Q1

REPORT INFORMATION
  Report Type: Spontaneous
  Country: TR (occurrence: TR)
  Receive Date: 20130201
  Receipt Date: 20130201
  Transmission Date: 20140127
  Serious: Yes (Hospitalization)
  Sender: FDA-Public Use
  Company Number: TR-MYLANLABS-2013S1001906

PATIENT
  Age: 60 Year
  Sex: Male

DRUGS (3)
  1. GEMIFLOXACIN [Suspect]
     Indication: BRONCHITIS
     Dosage: 320MG ONCE DAILY
     Route: 065
  2. CARVEDILOL [Suspect]
     Dosage: 12.5 MG/DAY AT BEDTIME
     Route: 065
  3. TAMSULOSIN [Suspect]
     Route: 065

REACTIONS (1)
  - Anaphylactic reaction [Recovered/Resolved]
